FAERS Safety Report 16970586 (Version 1)
Quarter: 2019Q4

REPORT INFORMATION
  Report Type: Spontaneous
  Country: FR (occurrence: FR)
  Receive Date: 20191029
  Receipt Date: 20191029
  Transmission Date: 20200122
  Serious: Yes (Other)
  Sender: FDA-Public Use
  Company Number: FR-PFIZER INC-2019467108

PATIENT
  Age: 53 Year
  Sex: Male

DRUGS (2)
  1. SUTENT [Suspect]
     Active Substance: SUNITINIB MALATE
     Indication: METASTATIC RENAL CELL CARCINOMA
     Dosage: 50 MG 4 WEEKS ON/ 2 WEEKS OFF
     Dates: start: 201012, end: 201108
  2. SUTENT [Suspect]
     Active Substance: SUNITINIB MALATE
     Dosage: 50 MG 4 WEEKS ON/ 2 WEEKS OFF
     Dates: start: 20110930

REACTIONS (13)
  - Palmar-plantar erythrodysaesthesia syndrome [Unknown]
  - Hypertrichosis [Unknown]
  - Weight decreased [Unknown]
  - Pyrexia [Recovered/Resolved]
  - Lung disorder [Unknown]
  - Diabetes mellitus inadequate control [Unknown]
  - Hypertensive crisis [Unknown]
  - Abdominal pain upper [Unknown]
  - Photosensitivity reaction [Unknown]
  - Skin disorder [Unknown]
  - Rash [Unknown]
  - Haemorrhoids [Unknown]
  - Asthenia [Unknown]

NARRATIVE: CASE EVENT DATE: 2011
